FAERS Safety Report 4941438-3 (Version None)
Quarter: 2006Q1

REPORT INFORMATION
  Report Type: 
  Country: None (occurrence: None)
  Receive Date: 20060313
  Receipt Date: 20051223
  Transmission Date: 20060701
  Serious: Yes (Hospitalization, Other)
  Sender: FDA-Public Use
  Company Number: US-MERCK-0512USA03773

PATIENT
  Age: 68 Year
  Sex: Male
  Weight: 100 kg

DRUGS (1)
  1. VIOXX [Suspect]
     Indication: SURGERY
     Route: 048
     Dates: start: 20031001, end: 20040830

REACTIONS (3)
  - BACK DISORDER [None]
  - MYOCARDIAL INFARCTION [None]
  - SURGERY [None]
